FAERS Safety Report 13093218 (Version 1)
Quarter: 2017Q1

REPORT INFORMATION
  Report Type: Spontaneous
  Country: US (occurrence: US)
  Receive Date: 20170106
  Receipt Date: 20170106
  Transmission Date: 20170428
  Serious: Yes (Other)
  Sender: FDA-Public Use
  Company Number: None

PATIENT
  Age: 63 Year
  Sex: Female
  Weight: 71.67 kg

DRUGS (7)
  1. PROBIOTIC [Concomitant]
     Active Substance: PROBIOTICS NOS
  2. LEVOTHYROXIN [Concomitant]
     Active Substance: LEVOTHYROXINE
  3. BACLOFEN. [Concomitant]
     Active Substance: BACLOFEN
  4. UBIQUINOL [Concomitant]
     Active Substance: UBIQUINOL
  5. TECFIDERA [Suspect]
     Active Substance: DIMETHYL FUMARATE
     Indication: MULTIPLE SCLEROSIS
     Dosage: ?          QUANTITY:AKING ^ * ,?RYYYLR;?
     Route: 048
     Dates: start: 20150304, end: 20150319
  6. COQ10 [Concomitant]
     Active Substance: UBIDECARENONE
  7. VITAMIN D [Concomitant]
     Active Substance: CHOLECALCIFEROL

REACTIONS (2)
  - Abdominal distension [None]
  - Rash [None]

NARRATIVE: CASE EVENT DATE: 20150319
